FAERS Safety Report 5390129-6 (Version None)
Quarter: 2007Q3

REPORT INFORMATION
  Report Type: 
  Country: None (occurrence: None)
  Receive Date: 20070716
  Receipt Date: 20070716
  Transmission Date: 20080115
  Serious: Yes (Other)
  Sender: FDA-Public Use
  Company Number: None

PATIENT
  Age: 46 Year
  Sex: Female
  Weight: 68.0396 kg

DRUGS (2)
  1. SOLU-MEDROL [Suspect]
     Indication: MULTIPLE SCLEROSIS
     Dosage: 1 G  1X  IV DRIP
     Route: 041
     Dates: start: 20070501, end: 20070501
  2. SOLU-MEDROL [Suspect]
     Indication: MULTIPLE SCLEROSIS
     Dosage: 1 G  1X  IV DRIP
     Route: 041
     Dates: start: 20070713, end: 20070713

REACTIONS (3)
  - FLUSHING [None]
  - INFUSION RELATED REACTION [None]
  - PRURITUS [None]
